FAERS Safety Report 16756932 (Version 1)
Quarter: 2019Q3

REPORT INFORMATION
  Report Type: Spontaneous
  Country: CN (occurrence: CN)
  Receive Date: 20190829
  Receipt Date: 20190829
  Transmission Date: 20191005
  Serious: Yes (Other)
  Sender: FDA-Public Use
  Company Number: CN-JNJFOC-20190833293

PATIENT
  Age: 5 Year
  Sex: Male

DRUGS (1)
  1. TOPAMAX [Suspect]
     Active Substance: TOPIRAMATE
     Indication: PRODUCT USED FOR UNKNOWN INDICATION
     Dosage: TOPIRAMATE TABLETS 25MG*60
     Route: 048

REACTIONS (1)
  - Aphasia [Unknown]
